FAERS Safety Report 25906605 (Version 1)
Quarter: 2025Q4

REPORT INFORMATION
  Report Type: Spontaneous
  Country: EU (occurrence: EU)
  Receive Date: 20251010
  Receipt Date: 20251010
  Transmission Date: 20260118
  Serious: Yes (Other)
  Sender: SANDOZ
  Company Number: EU-VA000000599-2025001803

PATIENT

DRUGS (2)
  1. ACETAMINOPHEN [Suspect]
     Active Substance: ACETAMINOPHEN
     Dosage: AT A THERAPEUTIC DOSE WITHIN THE CONTEXT  OF HER HYPERTHERMIA DURING HOSPITALIZATION  IN THE FIRST T
     Route: 064
  2. ACETAMINOPHEN [Suspect]
     Active Substance: ACETAMINOPHEN
     Indication: Hyperthermia
     Dosage: AN ABNORMAL CONSUMPTION OF PARACETAMOL
     Route: 064

REACTIONS (2)
  - Foetal distress syndrome [Unknown]
  - Foetal exposure during pregnancy [Unknown]
